FAERS Safety Report 9963982 (Version 5)
Quarter: 2014Q2

REPORT INFORMATION
  Report Type: Spontaneous
  Country: JP (occurrence: JP)
  Receive Date: 20140305
  Receipt Date: 20140421
  Transmission Date: 20141212
  Serious: Yes (Death, Life-Threatening, Disabling)
  Sender: FDA-Public Use
  Company Number: JP-B.I. PHARMACEUTICALS,INC./RIDGEFIELD-2014-BI-09462NB

PATIENT
  Age: 88 Year
  Sex: Female
  Weight: 43 kg

DRUGS (10)
  1. PRAZAXA [Suspect]
     Indication: ATRIAL FIBRILLATION
     Dosage: 220 MG
     Route: 048
     Dates: end: 20131213
  2. SYMMETREL / AMANTADINE HYDROCHLORIDE [Concomitant]
     Dosage: 100 MG
     Route: 048
     Dates: end: 20131213
  3. GASTER D / FAMOTIDINE [Concomitant]
     Dosage: 20 MG
     Route: 048
     Dates: end: 20131213
  4. CRESTOR / ROSUVASTATIN CALCIUM [Concomitant]
     Dosage: 2.5 MG
     Route: 048
     Dates: end: 20131213
  5. PAXIL / PAROXETINE HYDROCHLORIDE HYDRATE [Concomitant]
     Dosage: 20 MG
     Route: 048
     Dates: end: 20131213
  6. EMPYNASE P / PRONASE [Concomitant]
     Dosage: 54000 U
     Route: 048
     Dates: end: 20131213
  7. MUCOSOLVAN /AMBROXOL HYDROCHLORIDE [Concomitant]
     Dosage: 45 MG
     Route: 048
     Dates: end: 20131213
  8. PYDOXAL /PYRIDOXAL PHOSPHATE HYDRATE [Concomitant]
     Dosage: 30 MG
     Route: 048
     Dates: end: 20131213
  9. ADETPHOS / ADENOSINE TRIPHOSPHATE DISODIUM HYDRATE GR [Concomitant]
     Dosage: 3 G
     Route: 048
     Dates: end: 20131213
  10. METHYCOBAL / MECOBALAMIN [Concomitant]
     Dosage: 1500 MCG
     Route: 048
     Dates: end: 20131213

REACTIONS (4)
  - Subdural haematoma [Fatal]
  - Fall [Unknown]
  - Hydrocephalus [Not Recovered/Not Resolved]
  - Cerebral infarction [Not Recovered/Not Resolved]
